FAERS Safety Report 4610202-7 (Version None)
Quarter: 2005Q1

REPORT INFORMATION
  Report Type: 
  Country: None (occurrence: None)
  Receive Date: 20050301
  Receipt Date: 20041115
  Transmission Date: 20050727
  Serious: No
  Sender: FDA-Public Use
  Company Number: WAES 0411USA02543

PATIENT
  Sex: Female

DRUGS (3)
  1. ZETIA [Suspect]
     Dosage: PO
     Route: 048
  2. LOTREL [Concomitant]
  3. SYNTHROID [Concomitant]

REACTIONS (1)
  - MYALGIA [None]
